FAERS Safety Report 20448288 (Version 9)
Quarter: 2023Q1

REPORT INFORMATION
  Report Type: Report from Study
  Country: KW (occurrence: KW)
  Receive Date: 20220209
  Receipt Date: 20230223
  Transmission Date: 20230418
  Serious: Yes (Congenital Anomaly)
  Sender: FDA-Public Use
  Company Number: KW-NOVARTISPH-NVSC2022KW025567

PATIENT
  Age: 2 Month
  Sex: Female

DRUGS (5)
  1. COSENTYX [Suspect]
     Active Substance: SECUKINUMAB
     Indication: Foetal exposure during pregnancy
     Dosage: MATERNAL DOSE: UNKNOWN
     Route: 064
  2. COSENTYX [Suspect]
     Active Substance: SECUKINUMAB
     Dosage: MATERNAL DOSE: 150 MG, QMO
     Route: 058
     Dates: start: 20190623, end: 20210507
  3. FOLIC ACID [Concomitant]
     Active Substance: FOLIC ACID
     Indication: Foetal exposure during pregnancy
     Dosage: MATERNAL DOSE: QD
     Route: 064
  4. CALCIUM [Concomitant]
     Active Substance: CALCIUM
     Indication: Foetal exposure during pregnancy
     Dosage: MATERNAL DOSE: QD
     Route: 064
  5. FERRIC CHLORID [Concomitant]
     Indication: Foetal exposure during pregnancy
     Dosage: MATERNAL DOSE: QD
     Route: 064

REACTIONS (3)
  - Kidney duplex [Unknown]
  - Kidney enlargement [Not Recovered/Not Resolved]
  - Foetal exposure during pregnancy [Unknown]
